FAERS Safety Report 19436232 (Version 1)
Quarter: 2021Q2

REPORT INFORMATION
  Report Type: Spontaneous
  Country: NL (occurrence: NL)
  Receive Date: 20210618
  Receipt Date: 20210618
  Transmission Date: 20210717
  Serious: Yes (Disabling)
  Sender: FDA-Public Use
  Company Number: NL-TEVA-2021-NL-1922867

PATIENT
  Sex: Female
  Weight: 105 kg

DRUGS (3)
  1. INDAPAMIDE DRAGEE 2,5MG / BRAND NAME NOT SPECIFIED [Suspect]
     Active Substance: INDAPAMIDE
     Indication: HYPERTENSION
  2. LEVOTHYROXINE CAPSULE 112UG / BRAND NAME NOT SPECIFIED [Concomitant]
     Dosage: 112 UG (MICROGRAM),THERAPY START DATE :ASKU,THERAPY END DATE :ASKU
  3. INDAPAMIDE DRAGEE 2,5MG / BRAND NAME NOT SPECIFIED [Suspect]
     Active Substance: INDAPAMIDE
     Indication: OEDEMA PERIPHERAL
     Dosage: 2.5 MILLIGRAM DAILY;
     Dates: start: 20210415, end: 20210427

REACTIONS (3)
  - Dizziness [Recovered/Resolved]
  - Headache [Recovered/Resolved]
  - Syncope [Recovered/Resolved]
